FAERS Safety Report 8267563 (Version 3)
Quarter: 2013Q2

REPORT INFORMATION
  Report Type: Spontaneous
  Country: US (occurrence: None)
  Receive Date: 20111122
  Receipt Date: 20120703
  Transmission Date: 20140414
  Serious: Yes (Other)
  Sender: FDA-Public Use
  Company Number: PHHY2011US55248

PATIENT
  Age: 47 Year
  Sex: Female
  Weight: 77.6 kg

DRUGS (5)
  1. GILENYA [Suspect]
     Indication: RELAPSING-REMITTING MULTIPLE SCLEROSIS
     Dosage: 0.5 MG, QD, ORAL
     Route: 048
     Dates: start: 20110502, end: 20110616
  2. PROVIGIL [Concomitant]
  3. TOPAMAX [Concomitant]
  4. AMBIEN [Concomitant]
  5. FLEXERIL [Concomitant]

REACTIONS (3)
  - MACULAR OEDEMA [None]
  - VISION BLURRED [None]
  - PHOTOPSIA [None]
